FAERS Safety Report 22059487 (Version 2)
Quarter: 2023Q2

REPORT INFORMATION
  Report Type: Spontaneous
  Country: US (occurrence: US)
  Receive Date: 20230303
  Receipt Date: 20230525
  Transmission Date: 20230722
  Serious: Yes (Life-Threatening, Hospitalization)
  Sender: FDA-Public Use
  Company Number: US-UCBSA-2023010576

PATIENT
  Age: 32 Year
  Sex: Female
  Weight: 160 kg

DRUGS (1)
  1. CIMZIA [Suspect]
     Active Substance: CERTOLIZUMAB PEGOL
     Indication: Rheumatoid arthritis
     Dosage: 200 MILLIGRAM, EV 2 WEEKS(QOW)
     Route: 058
     Dates: start: 202003, end: 20220221

REACTIONS (3)
  - Renal failure [Not Recovered/Not Resolved]
  - Glomerulonephritis rapidly progressive [Not Recovered/Not Resolved]
  - Anti-neutrophil cytoplasmic antibody positive vasculitis [Not Recovered/Not Resolved]

NARRATIVE: CASE EVENT DATE: 20220201
